FAERS Safety Report 23936247 (Version 1)
Quarter: 2024Q2

REPORT INFORMATION
  Report Type: Spontaneous
  Country: FR (occurrence: FR)
  Receive Date: 20240604
  Receipt Date: 20240604
  Transmission Date: 20240715
  Serious: Yes (Life-Threatening)
  Sender: FDA-Public Use
  Company Number: None

PATIENT
  Age: 72 Year
  Sex: Male

DRUGS (4)
  1. PEMETREXED [Suspect]
     Active Substance: PEMETREXED
     Indication: Neoplasm malignant
     Dosage: CYCLICAL
     Dates: start: 20240305, end: 20240305
  2. CARBOPLATIN [Suspect]
     Active Substance: CARBOPLATIN
     Indication: Neoplasm malignant
     Dosage: 490 MG TOTAL PER CYCLE
     Dates: start: 20240305, end: 20240305
  3. ONDANSETRON [Suspect]
     Active Substance: ONDANSETRON
     Indication: Prophylactic chemotherapy
     Dosage: CYCLICAL
     Dates: start: 20240305, end: 20240305
  4. METHYLPREDNISOLONE [Suspect]
     Active Substance: METHYLPREDNISOLONE
     Indication: Prophylactic chemotherapy
     Dosage: CYCLICAL
     Dates: start: 20240305, end: 20240305

REACTIONS (1)
  - Hypersensitivity [Recovered/Resolved]

NARRATIVE: CASE EVENT DATE: 20240305
